FAERS Safety Report 6612327-3 (Version None)
Quarter: 2010Q1

REPORT INFORMATION
  Report Type: 
  Country: None (occurrence: None)
  Receive Date: 20100302
  Receipt Date: 20100302
  Transmission Date: 20100710
  Serious: No
  Sender: FDA-Public Use
  Company Number: None

PATIENT
  Sex: Female

DRUGS (1)
  1. HYDROMORPHONE HCL [Suspect]
     Indication: PAIN
     Dosage: 2MG IV BOLUS
     Route: 040
     Dates: start: 20100225, end: 20100226

REACTIONS (2)
  - DYSPNOEA [None]
  - THROAT TIGHTNESS [None]
